FAERS Safety Report 20997348 (Version 1)
Quarter: 2022Q2

REPORT INFORMATION
  Report Type: Spontaneous
  Country: FR (occurrence: FR)
  Receive Date: 20220623
  Receipt Date: 20220623
  Transmission Date: 20220721
  Serious: Yes (Other)
  Sender: FDA-Public Use
  Company Number: FR-AFSSAPS-NC20222127

PATIENT
  Age: 52 Year
  Sex: Female

DRUGS (9)
  1. DROPERIDOL [Suspect]
     Active Substance: DROPERIDOL
     Indication: Induction of anaesthesia
     Dosage: 1 DOSAGE FORM, ONCE A DAY
     Route: 041
  2. TRAMADOL [Suspect]
     Active Substance: TRAMADOL
     Indication: Pain
     Dosage: 1 DOSAGE FORM, ONCE A DAY
     Route: 041
     Dates: start: 20220215, end: 20220215
  3. MIDAZOLAM [Suspect]
     Active Substance: MIDAZOLAM
     Indication: Induction of anaesthesia
     Dosage: 1 DOSAGE FORM, ONCE A DAY
     Route: 041
     Dates: start: 20220215, end: 20220215
  4. NICARDIPINE HYDROCHLORIDE [Suspect]
     Active Substance: NICARDIPINE HYDROCHLORIDE
     Indication: Induction of anaesthesia
     Dosage: 1 DOSAGE FORM, ONCE A DAY
     Route: 041
     Dates: start: 20220215, end: 20220215
  5. PROPOFOL [Suspect]
     Active Substance: PROPOFOL
     Indication: Induction of anaesthesia
     Dosage: 1 DOSAGE FORM, ONCE A DAY
     Route: 041
     Dates: start: 20220215, end: 20220215
  6. PERFALGAN [Suspect]
     Active Substance: ACETAMINOPHEN
     Indication: Induction of anaesthesia
     Dosage: 1 DOSAGE FORM, ONCE A DAY
     Route: 041
     Dates: start: 20220215, end: 20220215
  7. SUFENTANIL [Suspect]
     Active Substance: SUFENTANIL
     Indication: Induction of anaesthesia
     Dosage: 1 DOSAGE FORM, ONCE A DAY
     Route: 041
     Dates: start: 20220215, end: 20220215
  8. VANCOMYCIN [Suspect]
     Active Substance: VANCOMYCIN
     Indication: Induction of anaesthesia
     Dosage: 1 DOSAGE FORM, ONCE A DAY
     Route: 041
     Dates: start: 20220215, end: 20220215
  9. ONDANSETRON [Suspect]
     Active Substance: ONDANSETRON
     Indication: Induction of anaesthesia
     Dosage: 1 DOSAGE FORM, ONCE A DAY
     Route: 041
     Dates: start: 20220215, end: 20220215

REACTIONS (2)
  - Toxic skin eruption [Recovering/Resolving]
  - Eosinophilia [Recovering/Resolving]

NARRATIVE: CASE EVENT DATE: 20220301
